FAERS Safety Report 9993579 (Version 2)
Quarter: 2014Q1

REPORT INFORMATION
  Report Type: Spontaneous
  Country: MX (occurrence: MX)
  Receive Date: 20140310
  Receipt Date: 20140314
  Transmission Date: 20141002
  Serious: Yes (Hospitalization)
  Sender: FDA-Public Use
  Company Number: PHHY2014MX029040

PATIENT
  Age: 16 Year
  Sex: Male

DRUGS (5)
  1. MYFORTIC [Suspect]
     Indication: SYSTEMIC LUPUS ERYTHEMATOSUS
     Dosage: FILM COATED TABLETS IN MORNINGS AND TWO AN NIGHT
     Route: 048
  2. MYFORTIC [Suspect]
     Indication: OFF LABEL USE
     Dosage: 6 TABLETS DAILY, TAKING 3 IN MORNING AND 3 AT NIGHT.
     Route: 048
  3. METICORTEN [Concomitant]
     Indication: SYSTEMIC LUPUS ERYTHEMATOSUS
     Dosage: UNK UKN, QD
     Dates: start: 2005
  4. OMEPRAZOLE [Concomitant]
     Indication: GASTROINTESTINAL DISORDER
     Dosage: 1-4 TABLETS, UNK
     Dates: start: 2008
  5. KEPPRA [Concomitant]
     Indication: CONVULSION
     Dosage: 2 UKN, QD
     Dates: start: 2010

REACTIONS (3)
  - Inflammatory bowel disease [Recovering/Resolving]
  - Abdominal pain upper [Recovering/Resolving]
  - Systemic lupus erythematosus [Recovered/Resolved]
